FAERS Safety Report 5136104-8 (Version None)
Quarter: 2006Q4

REPORT INFORMATION
  Report Type: 
  Country: None (occurrence: None)
  Receive Date: 20061027
  Receipt Date: 20061020
  Transmission Date: 20070319
  Serious: Yes (Other)
  Sender: FDA-Public Use
  Company Number: JP-BRISTOL-MYERS SQUIBB COMPANY-13549043

PATIENT
  Age: 62 Year
  Sex: Female

DRUGS (3)
  1. STAVUDINE [Suspect]
     Indication: HIV INFECTION
     Dates: start: 20031201
  2. LAMIVUDINE [Suspect]
     Indication: HIV INFECTION
     Dates: start: 20031201
  3. LOPINAVIR + RITONAVIR [Suspect]
     Indication: HIV INFECTION
     Dosage: DOSAGE FORM: LOPINAVIR 400 MG + RITONAVIR 100 MG TWICE DAILY
     Dates: start: 20031201

REACTIONS (1)
  - SICK SINUS SYNDROME [None]
